FAERS Safety Report 8811742 (Version 1)
Quarter: 2012Q4

REPORT INFORMATION
  Report Type: Spontaneous
  Country: US (occurrence: None)
  Receive Date: 20120925
  Receipt Date: 20120925
  Transmission Date: 20130627
  Serious: Yes (Life-Threatening, Hospitalization)
  Sender: FDA-Public Use
  Company Number: None

PATIENT
  Age: 54 Year
  Sex: Female
  Weight: 95 kg

DRUGS (5)
  1. PHENYTOIN [Suspect]
     Indication: SEIZURE
     Dosage: 1,500 -total- Once, IV Drip
     Route: 041
     Dates: start: 20120815, end: 20120815
  2. PHENYTOIN [Suspect]
     Dosage: 1,500 -total-, Once, IV Drip
     Route: 041
     Dates: start: 20120815, end: 20120815
  3. NORMAL SALINE INJECTION [Concomitant]
  4. OMEPRAZOLE [Concomitant]
  5. METOPROLOL TARTRATE [Concomitant]

REACTIONS (3)
  - Anaphylactic reaction [None]
  - Respiratory failure [None]
  - Convulsion [None]
